FAERS Safety Report 5390596-8 (Version None)
Quarter: 2007Q3

REPORT INFORMATION
  Report Type: 
  Country: None (occurrence: None)
  Receive Date: 20070718
  Receipt Date: 20070123
  Transmission Date: 20080115
  Serious: No
  Sender: FDA-Public Use
  Company Number: US-KINGPHARMUSA00001-K200700075

PATIENT

DRUGS (1)
  1. LEVOXYL [Suspect]
     Dosage: 75 MCG OR 88 MCG

REACTIONS (2)
  - DIZZINESS [None]
  - NAUSEA [None]
